FAERS Safety Report 24210933 (Version 2)
Quarter: 2024Q3

REPORT INFORMATION
  Report Type: Spontaneous
  Country: JP (occurrence: JP)
  Receive Date: 20240814
  Receipt Date: 20240820
  Transmission Date: 20241016
  Serious: Yes (Hospitalization, Other)
  Sender: ALEXION PHARMACEUTICALS
  Company Number: JP-AstraZeneca-CH-00679581A

PATIENT
  Age: 4 Month
  Sex: Male

DRUGS (1)
  1. SOLIRIS [Suspect]
     Active Substance: ECULIZUMAB
     Indication: Atypical haemolytic uraemic syndrome
     Dosage: UNK
     Route: 065

REACTIONS (6)
  - Cerebral haemorrhage [Unknown]
  - Shock [Unknown]
  - Cerebral atrophy [Unknown]
  - Hepatic function abnormal [Unknown]
  - Blood disorder [Unknown]
  - Thrombosis [Unknown]
